FAERS Safety Report 5914754-6 (Version None)
Quarter: 2008Q4

REPORT INFORMATION
  Report Type: 
  Country: None (occurrence: None)
  Receive Date: 20081010
  Receipt Date: 20081006
  Transmission Date: 20090506
  Serious: Yes (Other)
  Sender: FDA-Public Use
  Company Number: JP-AVENTIS-200812944JP

PATIENT
  Age: 73 Year
  Sex: Male
  Weight: 45.8 kg

DRUGS (1)
  1. CLEXANE [Suspect]
     Dosage: DOSE: 2000 IU
     Route: 058
     Dates: start: 20080906, end: 20080908

REACTIONS (3)
  - HAEMOGLOBIN DECREASED [None]
  - HAEMORRHAGE SUBCUTANEOUS [None]
  - THROMBOCYTOPENIA [None]
